FAERS Safety Report 7652559-9 (Version None)
Quarter: 2011Q3

REPORT INFORMATION
  Report Type: 
  Country: None (occurrence: None)
  Receive Date: 20110803
  Receipt Date: 20110731
  Transmission Date: 20111222
  Serious: Yes (Other)
  Sender: FDA-Public Use
  Company Number: BE-BRISTOL-MYERS SQUIBB COMPANY-15940265

PATIENT
  Age: 10 Year
  Sex: Male
  Weight: 45 kg

DRUGS (3)
  1. ABILIFY [Suspect]
     Dosage: DOSAGE OF ABILIFY WAS DECREASED TO 10MG.
  2. RITALIN [Concomitant]
  3. FUROSEMIDE [Concomitant]

REACTIONS (7)
  - WEIGHT INCREASED [None]
  - MYALGIA [None]
  - APATHY [None]
  - OEDEMA [None]
  - ASTHENIA [None]
  - SOMNOLENCE [None]
  - MUSCULOSKELETAL STIFFNESS [None]
